FAERS Safety Report 18243916 (Version 2)
Quarter: 2020Q3

REPORT INFORMATION
  Report Type: Spontaneous
  Country: AU (occurrence: AU)
  Receive Date: 20200908
  Receipt Date: 20200924
  Transmission Date: 20201103
  Serious: Yes (Hospitalization)
  Sender: FDA-Public Use
  Company Number: NVSC2020AU245764

PATIENT
  Age: 59 Year
  Sex: Female
  Weight: 67.8 kg

DRUGS (2)
  1. KISQALI [Suspect]
     Active Substance: RIBOCICLIB
     Indication: BREAST CANCER METASTATIC
     Dosage: DAILY DOSING: 21/28
     Route: 048
     Dates: start: 20200820, end: 20200825
  2. FULVESTRANT. [Concomitant]
     Active Substance: FULVESTRANT
     Indication: PRODUCT USED FOR UNKNOWN INDICATION
     Dosage: DAILY DOSING: 0,2, 4 THE 4 WEEKLY
     Route: 030
     Dates: start: 20200820

REACTIONS (2)
  - Diarrhoea [Recovered/Resolved]
  - Liver function test abnormal [Not Recovered/Not Resolved]

NARRATIVE: CASE EVENT DATE: 20200825
